FAERS Safety Report 9686569 (Version 1)
Quarter: 2013Q4

REPORT INFORMATION
  Report Type: Spontaneous
  Country: DE (occurrence: DE)
  Receive Date: 20131113
  Receipt Date: 20131113
  Transmission Date: 20140711
  Serious: Yes (Other)
  Sender: FDA-Public Use
  Company Number: DE-AMGEN-DEUSP2013079647

PATIENT
  Age: 61 Year
  Sex: Female

DRUGS (4)
  1. ENBREL [Suspect]
     Indication: RHEUMATOID ARTHRITIS
     Dosage: 25 MG, WEEKLY
     Route: 065
     Dates: start: 20121119
  2. VIGANTOLETTEN [Concomitant]
     Dosage: UNK
  3. PREDNISOLONE [Concomitant]
     Dosage: UNK
  4. MAGNESIUM [Concomitant]
     Dosage: UNK

REACTIONS (5)
  - Swelling face [Not Recovered/Not Resolved]
  - Erythema [Not Recovered/Not Resolved]
  - Dizziness [Not Recovered/Not Resolved]
  - Palpitations [Not Recovered/Not Resolved]
  - Musculoskeletal pain [Unknown]
